FAERS Safety Report 26048966 (Version 2)
Quarter: 2025Q4

REPORT INFORMATION
  Report Type: Report from Study
  Country: US (occurrence: US)
  Receive Date: 20251115
  Receipt Date: 20251226
  Transmission Date: 20260117
  Serious: Yes (Hospitalization)
  Sender: ABBVIE
  Company Number: US-ABBVIE-6542683

PATIENT
  Age: 89 Year
  Sex: Female

DRUGS (1)
  1. SKYRIZI [Suspect]
     Active Substance: RISANKIZUMAB-RZAA
     Indication: Crohn^s disease
     Route: 042
     Dates: start: 20250916, end: 20251006

REACTIONS (3)
  - Ileostomy [Recovering/Resolving]
  - Gastrointestinal disorder [Unknown]
  - Purulence [Recovering/Resolving]

NARRATIVE: CASE EVENT DATE: 20250101
